FAERS Safety Report 6055540-9 (Version None)
Quarter: 2009Q1

REPORT INFORMATION
  Report Type: 
  Country: None (occurrence: None)
  Receive Date: 20090128
  Receipt Date: 20090119
  Transmission Date: 20090719
  Serious: Yes (Hospitalization)
  Sender: FDA-Public Use
  Company Number: B0554750A

PATIENT
  Age: 64 Year
  Sex: Male

DRUGS (4)
  1. ZELITREX [Suspect]
     Dosage: 500MG TWICE PER DAY
     Route: 048
  2. MABTHERA [Suspect]
     Dosage: 375MGM2 PER DAY
     Route: 042
     Dates: start: 20080123, end: 20080319
  3. FLUDARA [Suspect]
     Dosage: 40MGM2 CYCLIC
     Route: 048
     Dates: start: 20080101
  4. BACTRIM DS [Suspect]
     Dosage: 1TAB THREE TIMES PER WEEK
     Route: 048

REACTIONS (3)
  - ARTHRALGIA [None]
  - HYPOAESTHESIA [None]
  - PAIN [None]
